FAERS Safety Report 9275081 (Version 1)
Quarter: 2013Q2

REPORT INFORMATION
  Report Type: Report from Study
  Country: US (occurrence: US)
  Receive Date: 20130507
  Receipt Date: 20130507
  Transmission Date: 20140414
  Serious: Yes (Other)
  Sender: FDA-Public Use
  Company Number: PHHY2013US044459

PATIENT
  Sex: Female
  Weight: 77 kg

DRUGS (3)
  1. GILENYA [Suspect]
     Indication: MULTIPLE SCLEROSIS
     Dosage: 0.5 MG, QD
     Route: 048
     Dates: start: 201103, end: 201103
  2. METHADONE [Concomitant]
     Dosage: 10 MG, BID
  3. METHADONE [Concomitant]
     Dosage: 5 MG, TID

REACTIONS (20)
  - Musculoskeletal pain [Unknown]
  - Intervertebral disc protrusion [Unknown]
  - Insomnia [Unknown]
  - Neurogenic bladder [Unknown]
  - Limb discomfort [Unknown]
  - Balance disorder [Unknown]
  - Neck pain [Unknown]
  - Constipation [Unknown]
  - Fatigue [Unknown]
  - Muscle spasms [Unknown]
  - Pain [Unknown]
  - Hypoaesthesia [Unknown]
  - Chest pain [Unknown]
  - Pain in extremity [Unknown]
  - Vision blurred [Unknown]
  - Headache [Unknown]
  - Migraine [Unknown]
  - Dyspnoea [Unknown]
  - Back pain [Unknown]
  - Paraesthesia [Unknown]
